FAERS Safety Report 4265675-9 (Version None)
Quarter: 2004Q1

REPORT INFORMATION
  Report Type: 
  Country: None (occurrence: None)
  Receive Date: 20040107
  Receipt Date: 20031217
  Transmission Date: 20041129
  Serious: Yes (Hospitalization)
  Sender: FDA-Public Use
  Company Number: JP-GLAXOSMITHKLINE-B0318164A

PATIENT
  Age: 58 Year
  Sex: Female
  Weight: 38 kg

DRUGS (11)
  1. VALTREX [Suspect]
     Indication: HERPES ZOSTER
     Dosage: 1000MG PER DAY
     Route: 048
     Dates: start: 20031212, end: 20031214
  2. CARVEDILOL [Concomitant]
     Indication: HYPERTENSION
     Dosage: 30MG PER DAY
     Route: 048
     Dates: start: 20020406
  3. REBAMIPIDE [Concomitant]
     Indication: GASTRITIS
     Dosage: 200MG PER DAY
     Route: 048
     Dates: start: 20010818
  4. NICORANDIL [Concomitant]
     Indication: ANGINA PECTORIS
     Dosage: 10MG PER DAY
     Route: 048
     Dates: start: 20010818
  5. FAMOTIDINE [Concomitant]
     Indication: GASTRITIS
     Dosage: 10MG PER DAY
     Route: 048
     Dates: start: 20020615
  6. ENALAPRIL MALEATE [Concomitant]
     Indication: HYPERTENSION
     Dosage: 10MG PER DAY
     Route: 048
     Dates: start: 20010112
  7. MANIDIPINE HYDROCHLORIDE [Concomitant]
     Indication: HYPERTENSION
     Dosage: 20MG PER DAY
     Route: 048
     Dates: start: 20031011
  8. FUROSEMIDE [Concomitant]
     Indication: HYPERTENSION
     Dosage: 80MG PER DAY
     Route: 048
     Dates: start: 20010818
  9. PRECIPITATED CALCIUM CARBONATE [Concomitant]
     Indication: HYPERPHOSPHATAEMIA
     Dosage: 3G PER DAY
     Route: 048
     Dates: start: 20011208
  10. HEMODIALYSIS [Concomitant]
     Dosage: 1UNIT THREE TIMES PER WEEK
  11. EPOETIN ALFA [Concomitant]
     Indication: NEPHROGENIC ANAEMIA
     Dosage: 1500IU PER DAY
     Route: 042
     Dates: start: 20011020

REACTIONS (7)
  - ANXIETY [None]
  - DIZZINESS [None]
  - DYSARTHRIA [None]
  - ENCEPHALOPATHY [None]
  - EXCITABILITY [None]
  - HYPOAESTHESIA ORAL [None]
  - INSOMNIA [None]
